FAERS Safety Report 22155729 (Version 2)
Quarter: 2023Q2

REPORT INFORMATION
  Report Type: Report from Study
  Country: FR (occurrence: FR)
  Receive Date: 20230330
  Receipt Date: 20230407
  Transmission Date: 20230722
  Serious: Yes (Other)
  Sender: FDA-Public Use
  Company Number: FR-SA-SAC20230329000114

PATIENT
  Age: 8 Year
  Sex: Female

DRUGS (14)
  1. LEVOFLOXACIN [Suspect]
     Active Substance: LEVOFLOXACIN
     Indication: Disseminated Bacillus Calmette-Guerin infection
     Dosage: UNK
     Route: 065
  2. LEVOFLOXACIN [Suspect]
     Active Substance: LEVOFLOXACIN
     Indication: Disseminated mycobacterium avium complex infection
     Dosage: UNK
  3. LEVOFLOXACIN [Suspect]
     Active Substance: LEVOFLOXACIN
     Indication: Mycobacterium avium complex infection
     Dosage: UNK
  4. LEVOFLOXACIN [Suspect]
     Active Substance: LEVOFLOXACIN
     Indication: Acinetobacter infection
  5. RIFAMPIN [Suspect]
     Active Substance: RIFAMPIN
     Indication: Disseminated Bacillus Calmette-Guerin infection
     Dosage: UNK
     Route: 065
  6. RIFAMPIN [Suspect]
     Active Substance: RIFAMPIN
     Indication: Disseminated mycobacterium avium complex infection
     Dosage: UNK
  7. RIFAMPIN [Suspect]
     Active Substance: RIFAMPIN
     Indication: Mycobacterium avium complex infection
  8. AMIKACIN [Concomitant]
     Active Substance: AMIKACIN
  9. ISONIAZID [Concomitant]
     Active Substance: ISONIAZID
  10. ETHAMBUTOL [Concomitant]
     Active Substance: ETHAMBUTOL HYDROCHLORIDE
  11. CLARITHROMYCIN [Concomitant]
     Active Substance: CLARITHROMYCIN
  12. VORICONAZOLE [Concomitant]
     Active Substance: VORICONAZOLE
  13. INTERFERON GAMMA [Concomitant]
     Active Substance: INTERFERON GAMMA
  14. AMPHOTERICIN B [Concomitant]
     Active Substance: AMPHOTERICIN B

REACTIONS (5)
  - Hepatosplenomegaly [Unknown]
  - Pancytopenia [Unknown]
  - Anaemia [Unknown]
  - Thrombocytopenia [Unknown]
  - Leukopenia [Unknown]
